FAERS Safety Report 14874364 (Version 1)
Quarter: 2018Q2

REPORT INFORMATION
  Report Type: Spontaneous
  Country: US (occurrence: US)
  Receive Date: 20180424
  Receipt Date: 20180424
  Transmission Date: 20180711
  Serious: Yes (Hospitalization)
  Sender: FDA-Public Use
  Company Number: None

PATIENT
  Age: 93 Year
  Sex: Male
  Weight: 76.5 kg

DRUGS (13)
  1. PLAVIX [Concomitant]
     Active Substance: CLOPIDOGREL BISULFATE
  2. COUMADIN [Concomitant]
     Active Substance: WARFARIN SODIUM
  3. WELCHOL [Concomitant]
     Active Substance: COLESEVELAM HYDROCHLORIDE
  4. LOSARTAN. [Concomitant]
     Active Substance: LOSARTAN
  5. PROVENGE [Suspect]
     Active Substance: SIPULEUCEL-T
     Indication: PROSTATE CANCER
     Dosage: ?          OTHER FREQUENCY:QOW X 3 DOSES;?
     Route: 042
     Dates: start: 20180319, end: 20180419
  6. AMLODIPINE [Concomitant]
     Active Substance: AMLODIPINE BESYLATE
  7. AGRYLIN [Concomitant]
     Active Substance: ANAGRELIDE HYDROCHLORIDE
  8. EFFER-K [Concomitant]
  9. VITAMIN D [Concomitant]
     Active Substance: CHOLECALCIFEROL
  10. RAPAFLO [Concomitant]
     Active Substance: SILODOSIN
  11. HYDREA [Concomitant]
     Active Substance: HYDROXYUREA
  12. ELIGARD [Concomitant]
     Active Substance: LEUPROLIDE ACETATE
  13. LASIX [Concomitant]
     Active Substance: FUROSEMIDE

REACTIONS (2)
  - Speech disorder [None]
  - Fall [None]

NARRATIVE: CASE EVENT DATE: 20180419
